FAERS Safety Report 20110997 (Version 1)
Quarter: 2021Q4

REPORT INFORMATION
  Report Type: Spontaneous
  Country: US (occurrence: US)
  Receive Date: 20211125
  Receipt Date: 20211125
  Transmission Date: 20220303
  Serious: Yes (Other)
  Sender: FDA-Public Use
  Company Number: US-SUN PHARMACEUTICAL INDUSTRIES LTD-2021R1-318562

PATIENT
  Age: 74 Year
  Sex: Male

DRUGS (8)
  1. ABIRATERONE [Suspect]
     Active Substance: ABIRATERONE
     Indication: Prostate cancer metastatic
     Dosage: UNK
     Route: 065
  2. ABIRATERONE [Suspect]
     Active Substance: ABIRATERONE
     Indication: Head and neck cancer
  3. PREDNISONE [Concomitant]
     Active Substance: PREDNISONE
     Indication: Prostate cancer metastatic
     Dosage: 5 MILLIGRAM, DAILY
     Route: 065
  4. PREDNISONE [Concomitant]
     Active Substance: PREDNISONE
     Indication: Head and neck cancer
  5. SPIRONOLACTONE [Concomitant]
     Active Substance: SPIRONOLACTONE
     Indication: Prostate cancer metastatic
     Dosage: UNK
     Route: 065
  6. SPIRONOLACTONE [Concomitant]
     Active Substance: SPIRONOLACTONE
     Indication: Head and neck cancer
  7. CISPLATIN [Concomitant]
     Active Substance: CISPLATIN
     Indication: Prostate cancer metastatic
  8. CISPLATIN [Concomitant]
     Active Substance: CISPLATIN
     Indication: Head and neck cancer

REACTIONS (5)
  - Apparent mineralocorticoid excess [Unknown]
  - Urinary retention [Unknown]
  - Acute kidney injury [Recovering/Resolving]
  - Hypokalaemia [Recovered/Resolved]
  - Metabolic alkalosis [Unknown]
